FAERS Safety Report 9137698 (Version 1)
Quarter: 2013Q1

REPORT INFORMATION
  Report Type: Spontaneous
  Country: US (occurrence: US)
  Receive Date: 20130304
  Receipt Date: 20130304
  Transmission Date: 20140127
  Serious: No
  Sender: FDA-Public Use
  Company Number: US-ENDO PHARMACEUTICALS INC.-PERC20120173

PATIENT
  Age: 47 None
  Sex: Female
  Weight: 61.29 kg

DRUGS (3)
  1. PERCOCET 5MG/325MG [Suspect]
     Indication: PAIN
     Dosage: 5MG/325MG
     Route: 048
     Dates: start: 2012
  2. LYRICA [Suspect]
     Indication: PAIN
     Route: 048
     Dates: start: 20121114, end: 201211
  3. CELEBREX [Suspect]
     Indication: ARTHRALGIA
     Route: 048
     Dates: start: 20121114, end: 20121115

REACTIONS (7)
  - Breast pain [Unknown]
  - Breast mass [Unknown]
  - Breast discomfort [Unknown]
  - Breast swelling [Unknown]
  - Insomnia [Unknown]
  - Paraesthesia [Recovered/Resolved]
  - Drug ineffective [Not Recovered/Not Resolved]
